FAERS Safety Report 22520567 (Version 1)
Quarter: 2023Q2

REPORT INFORMATION
  Report Type: Spontaneous
  Country: MY (occurrence: None)
  Receive Date: 20230526
  Receipt Date: 20230526
  Transmission Date: 20230721
  Serious: Yes (Other)
  Sender: FDA-Public Use
  Company Number: None

PATIENT
  Sex: Female

DRUGS (1)
  1. GLUTATHIONE [Suspect]
     Active Substance: GLUTATHIONE

REACTIONS (5)
  - Product use in unapproved indication [None]
  - Muscle spasms [None]
  - Dizziness [None]
  - Product counterfeit [None]
  - Product label issue [None]

NARRATIVE: CASE EVENT DATE: 20230526
